FAERS Safety Report 4460070-1 (Version None)
Quarter: 2004Q3

REPORT INFORMATION
  Report Type: 
  Country: None (occurrence: None)
  Receive Date: 20040928
  Receipt Date: 20031201
  Transmission Date: 20050211
  Serious: No
  Sender: FDA-Public Use
  Company Number: US-GLAXOSMITHKLINE-A0441477A

PATIENT
  Age: 76 Year
  Sex: Female

DRUGS (4)
  1. SEREVENT [Suspect]
     Dosage: 1SPR TWICE PER DAY
     Route: 055
  2. AZMACORT [Concomitant]
  3. ATROVENT [Concomitant]
  4. MAXAIR [Concomitant]

REACTIONS (1)
  - DRUG INEFFECTIVE [None]
